FAERS Safety Report 5143498-6 (Version None)
Quarter: 2006Q4

REPORT INFORMATION
  Report Type: 
  Country: None (occurrence: None)
  Receive Date: 20061103
  Receipt Date: 20061024
  Transmission Date: 20070319
  Serious: Yes (Hospitalization)
  Sender: FDA-Public Use
  Company Number: FR-GLAXOSMITHKLINE-B0444406A

PATIENT
  Age: 31 Year
  Sex: Female

DRUGS (2)
  1. ZYBAN [Suspect]
     Route: 048
  2. CONCURRENT MEDICATIONS [Suspect]

REACTIONS (9)
  - AGGRESSION [None]
  - BLOOD PRESSURE SYSTOLIC INCREASED [None]
  - DELIRIUM [None]
  - DYSARTHRIA [None]
  - HALLUCINATION [None]
  - INTENTIONAL OVERDOSE [None]
  - PARKINSONISM [None]
  - SUICIDE ATTEMPT [None]
  - TACHYCARDIA [None]
